FAERS Safety Report 25707418 (Version 1)
Quarter: 2025Q3

REPORT INFORMATION
  Report Type: Spontaneous
  Country: RU (occurrence: RU)
  Receive Date: 20250820
  Receipt Date: 20250820
  Transmission Date: 20251020
  Serious: Yes (Hospitalization, Other)
  Sender: AMGEN
  Company Number: RU-AMGEN-RUSSP2025162844

PATIENT
  Age: 69 Year
  Sex: Male

DRUGS (1)
  1. VECTIBIX [Suspect]
     Active Substance: PANITUMUMAB
     Indication: Colorectal cancer metastatic
     Route: 065
     Dates: start: 202505, end: 202506

REACTIONS (4)
  - Pneumonia [Unknown]
  - Sepsis [Unknown]
  - Skin toxicity [Not Recovered/Not Resolved]
  - Rash pustular [Unknown]

NARRATIVE: CASE EVENT DATE: 20250101
